FAERS Safety Report 6664560-2 (Version None)
Quarter: 2010Q2

REPORT INFORMATION
  Report Type: 
  Country: None (occurrence: None)
  Receive Date: 20100401
  Receipt Date: 20100318
  Transmission Date: 20101027
  Serious: No
  Sender: FDA-Public Use
  Company Number: US-B.I. PHARMACEUTICALS,INC./RIDGEFIELD-2010-BP-03259BP

PATIENT
  Sex: Male

DRUGS (7)
  1. SPIRIVA [Suspect]
     Indication: EMPHYSEMA
     Dosage: 18 MCG
     Route: 055
     Dates: start: 20100215
  2. LOPRESSOR [Concomitant]
     Indication: HYPERTENSION
     Route: 048
  3. PREDNISONE TAB [Concomitant]
     Indication: ANAEMIA
     Route: 048
  4. HYDROXIA [Concomitant]
     Indication: WHITE BLOOD CELL COUNT
     Route: 048
  5. HYDROXIA [Concomitant]
     Indication: ANAEMIA
  6. HYDRIN-2 [Concomitant]
     Indication: PROSTATOMEGALY
     Route: 048
  7. HYDRIN-2 [Concomitant]
     Indication: BENIGN PROSTATIC HYPERPLASIA

REACTIONS (1)
  - GLOSSODYNIA [None]
